FAERS Safety Report 7308396-8 (Version None)
Quarter: 2011Q1

REPORT INFORMATION
  Report Type: 
  Country: None (occurrence: None)
  Receive Date: 20110210
  Receipt Date: 20110120
  Transmission Date: 20110831
  Serious: Yes (Death)
  Sender: FDA-Public Use
  Company Number: AE11-015-4

PATIENT
  Age: 59 Year
  Sex: Female

DRUGS (10)
  1. SERTRALINE [Suspect]
  2. FENOFIBRATE [Suspect]
  3. PROMETHAZINE [Suspect]
  4. LEVOTHYROXINE [Suspect]
  5. CLONIDINE [Suspect]
  6. LORCET (ACETAMINOPHEN/HYDROCODONE) [Suspect]
  7. EZETIMBIE/SIMVASTATIN [Suspect]
  8. LAMOTRIGINE [Suspect]
  9. AMLODIPINE [Suspect]
  10. TRANDOLAPRIL/VERAPAMIL [Suspect]

REACTIONS (2)
  - COMPLETED SUICIDE [None]
  - MULTIPLE DRUG OVERDOSE INTENTIONAL [None]
